FAERS Safety Report 14556919 (Version 1)
Quarter: 2018Q1

REPORT INFORMATION
  Report Type: Spontaneous
  Country: US (occurrence: US)
  Receive Date: 20180221
  Receipt Date: 20180221
  Transmission Date: 20180509
  Serious: No
  Sender: FDA-Public Use
  Company Number: US-BAYER-2018-033125

PATIENT
  Age: 52 Year
  Sex: Female

DRUGS (10)
  1. DILANTIN [Concomitant]
     Active Substance: PHENYTOIN
  2. CLARITIN [Suspect]
     Active Substance: LORATADINE
     Indication: HYPERSENSITIVITY
     Dosage: 1 DF, UNK
     Route: 048
  3. EFFEXOR [Concomitant]
     Active Substance: VENLAFAXINE HYDROCHLORIDE
  4. CLARITIN [Suspect]
     Active Substance: LORATADINE
     Indication: NASOPHARYNGITIS
  5. BAYER LOW DOSE [Suspect]
     Active Substance: ASPIRIN
  6. TOPAMAX [Concomitant]
     Active Substance: TOPIRAMATE
  7. PRAZOSIN. [Concomitant]
     Active Substance: PRAZOSIN
  8. LAMICTAL [Concomitant]
     Active Substance: LAMOTRIGINE
  9. ATIVAN [Concomitant]
     Active Substance: LORAZEPAM
  10. SEROQUEL [Concomitant]
     Active Substance: QUETIAPINE FUMARATE

REACTIONS (2)
  - Extra dose administered [Recovered/Resolved]
  - Drug hypersensitivity [Unknown]

NARRATIVE: CASE EVENT DATE: 20180218
